FAERS Safety Report 26070492 (Version 2)
Quarter: 2025Q4

REPORT INFORMATION
  Report Type: Report from Study
  Country: None (occurrence: EU)
  Receive Date: 20251120
  Receipt Date: 20251209
  Transmission Date: 20260118
  Serious: Yes (Other)
  Sender: ALNYLAM PHARMACEUTICALS
  Company Number: EU-ALNYLAM PHARMACEUTICALS, INC.-ALN-2025-007206

PATIENT
  Age: 50 Year
  Weight: 62.6 kg

DRUGS (2)
  1. GIVLAARI [Suspect]
     Active Substance: GIVOSIRAN SODIUM
     Indication: Product used for unknown indication
     Dosage: 152.5 MILLIGRAM, MONTHLY (EVERY 4 WEEKS)
  2. EPLERENONE [Concomitant]
     Active Substance: EPLERENONE
     Indication: Familial periodic paralysis
     Dosage: 50 MILLIGRAM-25 MILLIGRAM-25 MILLIGRAM, TID

REACTIONS (1)
  - Paralysis [Recovered/Resolved]
